FAERS Safety Report 24561932 (Version 6)
Quarter: 2025Q2

REPORT INFORMATION
  Report Type: Spontaneous
  Country: PK (occurrence: PK)
  Receive Date: 20241029
  Receipt Date: 20250429
  Transmission Date: 20250717
  Serious: Yes (Hospitalization, Other)
  Sender: PFIZER
  Company Number: PK-PFIZER INC-PV202400064212

PATIENT
  Age: 39 Year
  Sex: Male
  Weight: 57 kg

DRUGS (9)
  1. IXIFI [Suspect]
     Active Substance: INFLIXIMAB-QBTX
     Indication: Ankylosing spondylitis
     Route: 042
     Dates: start: 20240518
  2. IXIFI [Suspect]
     Active Substance: INFLIXIMAB-QBTX
     Route: 042
     Dates: start: 20240601
  3. IXIFI [Suspect]
     Active Substance: INFLIXIMAB-QBTX
     Route: 042
     Dates: start: 20240703
  4. IXIFI [Suspect]
     Active Substance: INFLIXIMAB-QBTX
     Route: 042
     Dates: start: 20240903
  5. NAPROXEN SODIUM [Concomitant]
     Active Substance: NAPROXEN SODIUM
     Dosage: 550 MG, 1X/DAY
  6. RISEK [OMEPRAZOLE] [Concomitant]
     Dosage: 40 MG, 1X/DAY
  7. NUBEROL [Concomitant]
  8. CYTOTREXATE [METHOTREXATE] [Concomitant]
  9. FOLIC ACID [Concomitant]
     Active Substance: FOLIC ACID

REACTIONS (8)
  - Uveitis [Recovering/Resolving]
  - Weight increased [Unknown]
  - C-reactive protein increased [Unknown]
  - Red blood cell sedimentation rate increased [Unknown]
  - Weight decreased [Unknown]
  - Off label use [Unknown]
  - Arthralgia [Unknown]
  - Back pain [Unknown]
